FAERS Safety Report 25517404 (Version 2)
Quarter: 2025Q3

REPORT INFORMATION
  Report Type: Spontaneous
  Country: CA (occurrence: CA)
  Receive Date: 20250704
  Receipt Date: 20250714
  Transmission Date: 20251020
  Serious: Yes (Death, Life-Threatening, Hospitalization, Disabling, Other)
  Sender: Kenvue
  Company Number: CA-KENVUE-20250611663

PATIENT

DRUGS (461)
  1. CETIRIZINE HYDROCHLORIDE [Suspect]
     Active Substance: CETIRIZINE HYDROCHLORIDE
     Indication: Rheumatoid arthritis
     Route: 065
  2. CETIRIZINE HYDROCHLORIDE [Suspect]
     Active Substance: CETIRIZINE HYDROCHLORIDE
     Route: 016
  3. CETIRIZINE HYDROCHLORIDE [Suspect]
     Active Substance: CETIRIZINE HYDROCHLORIDE
     Route: 065
  4. CETIRIZINE HYDROCHLORIDE [Suspect]
     Active Substance: CETIRIZINE HYDROCHLORIDE
     Route: 065
  5. CETIRIZINE HYDROCHLORIDE [Suspect]
     Active Substance: CETIRIZINE HYDROCHLORIDE
     Dosage: 10 MILLIGRAM, ONCE A DAY
     Route: 048
  6. CETIRIZINE HYDROCHLORIDE [Suspect]
     Active Substance: CETIRIZINE HYDROCHLORIDE
     Indication: Rheumatoid arthritis
     Route: 048
  7. CETIRIZINE HYDROCHLORIDE [Suspect]
     Active Substance: CETIRIZINE HYDROCHLORIDE
     Indication: Off label use
     Route: 065
  8. CETIRIZINE HYDROCHLORIDE [Suspect]
     Active Substance: CETIRIZINE HYDROCHLORIDE
     Route: 065
  9. CETIRIZINE HYDROCHLORIDE [Suspect]
     Active Substance: CETIRIZINE HYDROCHLORIDE
     Route: 065
  10. CETIRIZINE HYDROCHLORIDE [Suspect]
     Active Substance: CETIRIZINE HYDROCHLORIDE
     Route: 048
  11. CETIRIZINE HYDROCHLORIDE [Suspect]
     Active Substance: CETIRIZINE HYDROCHLORIDE
     Route: 065
  12. CETIRIZINE HYDROCHLORIDE [Suspect]
     Active Substance: CETIRIZINE HYDROCHLORIDE
     Route: 065
  13. CETIRIZINE HYDROCHLORIDE [Suspect]
     Active Substance: CETIRIZINE HYDROCHLORIDE
     Dosage: 10 MILLIGRAM, ONCE A DAY
     Route: 048
  14. CETIRIZINE HYDROCHLORIDE [Suspect]
     Active Substance: CETIRIZINE HYDROCHLORIDE
     Route: 065
  15. CETIRIZINE HYDROCHLORIDE [Suspect]
     Active Substance: CETIRIZINE HYDROCHLORIDE
     Route: 065
  16. CETIRIZINE HYDROCHLORIDE [Suspect]
     Active Substance: CETIRIZINE HYDROCHLORIDE
     Route: 065
  17. CETIRIZINE HYDROCHLORIDE [Suspect]
     Active Substance: CETIRIZINE HYDROCHLORIDE
     Route: 065
  18. CETIRIZINE HYDROCHLORIDE [Suspect]
     Active Substance: CETIRIZINE HYDROCHLORIDE
     Dosage: 10 MILLIGRAM, ONCE A DAY
     Route: 048
  19. CETIRIZINE HYDROCHLORIDE [Suspect]
     Active Substance: CETIRIZINE HYDROCHLORIDE
     Route: 065
  20. CETIRIZINE HYDROCHLORIDE [Suspect]
     Active Substance: CETIRIZINE HYDROCHLORIDE
     Route: 065
  21. CETIRIZINE HYDROCHLORIDE [Suspect]
     Active Substance: CETIRIZINE HYDROCHLORIDE
     Route: 048
  22. CETIRIZINE HYDROCHLORIDE [Suspect]
     Active Substance: CETIRIZINE HYDROCHLORIDE
     Route: 065
  23. CETIRIZINE HYDROCHLORIDE [Suspect]
     Active Substance: CETIRIZINE HYDROCHLORIDE
     Route: 065
  24. CETIRIZINE HYDROCHLORIDE [Suspect]
     Active Substance: CETIRIZINE HYDROCHLORIDE
     Route: 016
  25. CETIRIZINE HYDROCHLORIDE [Suspect]
     Active Substance: CETIRIZINE HYDROCHLORIDE
     Dosage: 10 MILLIGRAM, ONCE A DAY (1 EVERY 24 HOURS)
     Route: 048
  26. CETIRIZINE HYDROCHLORIDE [Suspect]
     Active Substance: CETIRIZINE HYDROCHLORIDE
     Route: 005
  27. CETIRIZINE HYDROCHLORIDE [Suspect]
     Active Substance: CETIRIZINE HYDROCHLORIDE
     Route: 065
  28. ACETAMINOPHEN [Suspect]
     Active Substance: ACETAMINOPHEN
     Indication: Rheumatoid arthritis
     Route: 065
  29. ACETAMINOPHEN [Suspect]
     Active Substance: ACETAMINOPHEN
     Indication: Product used for unknown indication
     Route: 065
  30. ACETAMINOPHEN [Suspect]
     Active Substance: ACETAMINOPHEN
     Route: 065
  31. ACETAMINOPHEN [Suspect]
     Active Substance: ACETAMINOPHEN
     Route: 065
  32. CETIRIZINE HYDROCHLORIDE\PSEUDOEPHEDRINE HYDROCHLORIDE [Suspect]
     Active Substance: CETIRIZINE HYDROCHLORIDE\PSEUDOEPHEDRINE HYDROCHLORIDE
     Indication: Rheumatoid arthritis
     Route: 065
  33. CETIRIZINE HYDROCHLORIDE\PSEUDOEPHEDRINE HYDROCHLORIDE [Suspect]
     Active Substance: CETIRIZINE HYDROCHLORIDE\PSEUDOEPHEDRINE HYDROCHLORIDE
     Route: 065
  34. ACETAMINOPHEN\CODEINE PHOSPHATE [Suspect]
     Active Substance: ACETAMINOPHEN\CODEINE PHOSPHATE
     Indication: Product used for unknown indication
     Route: 065
  35. ACETAMINOPHEN\CODEINE PHOSPHATE [Suspect]
     Active Substance: ACETAMINOPHEN\CODEINE PHOSPHATE
     Route: 065
  36. ACETAMINOPHEN\OXYCODONE HYDROCHLORIDE [Suspect]
     Active Substance: ACETAMINOPHEN\OXYCODONE HYDROCHLORIDE
     Indication: Product used for unknown indication
     Route: 065
  37. ACTEMRA [Suspect]
     Active Substance: TOCILIZUMAB
     Indication: Rheumatoid arthritis
     Route: 048
  38. ACTEMRA [Suspect]
     Active Substance: TOCILIZUMAB
     Route: 042
  39. ACTEMRA [Suspect]
     Active Substance: TOCILIZUMAB
     Route: 058
  40. ACTEMRA [Suspect]
     Active Substance: TOCILIZUMAB
     Route: 042
  41. ACTEMRA [Suspect]
     Active Substance: TOCILIZUMAB
     Route: 058
  42. ACTEMRA [Suspect]
     Active Substance: TOCILIZUMAB
     Route: 058
  43. ACTEMRA [Suspect]
     Active Substance: TOCILIZUMAB
     Route: 048
  44. ACTEMRA [Suspect]
     Active Substance: TOCILIZUMAB
     Route: 042
  45. ACTEMRA [Suspect]
     Active Substance: TOCILIZUMAB
     Route: 065
  46. ACTEMRA [Suspect]
     Active Substance: TOCILIZUMAB
     Route: 042
  47. ACTEMRA [Suspect]
     Active Substance: TOCILIZUMAB
     Route: 042
  48. ACTEMRA [Suspect]
     Active Substance: TOCILIZUMAB
     Route: 061
  49. ACTEMRA [Suspect]
     Active Substance: TOCILIZUMAB
     Route: 048
  50. ACTEMRA [Suspect]
     Active Substance: TOCILIZUMAB
     Route: 065
  51. ACTEMRA [Suspect]
     Active Substance: TOCILIZUMAB
     Route: 058
  52. ACTEMRA [Suspect]
     Active Substance: TOCILIZUMAB
     Route: 065
  53. ACTEMRA [Suspect]
     Active Substance: TOCILIZUMAB
     Indication: Rheumatoid arthritis
     Route: 042
  54. PANTOPRAZOLE SODIUM [Suspect]
     Active Substance: PANTOPRAZOLE SODIUM
     Indication: Product used for unknown indication
     Route: 065
  55. PREDNISONE [Suspect]
     Active Substance: PREDNISONE
     Indication: Rheumatoid arthritis
     Route: 065
  56. PREDNISONE [Suspect]
     Active Substance: PREDNISONE
     Indication: Condition aggravated
     Route: 065
  57. PREDNISONE [Suspect]
     Active Substance: PREDNISONE
     Route: 065
  58. PREDNISONE [Suspect]
     Active Substance: PREDNISONE
     Route: 065
  59. PREDNISONE [Suspect]
     Active Substance: PREDNISONE
     Route: 048
  60. PREDNISONE [Suspect]
     Active Substance: PREDNISONE
     Route: 048
  61. PREDNISONE [Suspect]
     Active Substance: PREDNISONE
     Route: 048
  62. PREDNISONE [Suspect]
     Active Substance: PREDNISONE
     Route: 048
  63. PREDNISONE [Suspect]
     Active Substance: PREDNISONE
     Route: 065
  64. PREDNISONE [Suspect]
     Active Substance: PREDNISONE
     Route: 048
  65. PREDNISONE [Suspect]
     Active Substance: PREDNISONE
     Route: 042
  66. PREDNISONE [Suspect]
     Active Substance: PREDNISONE
     Route: 048
  67. PREDNISONE [Suspect]
     Active Substance: PREDNISONE
     Route: 065
  68. PREDNISONE [Suspect]
     Active Substance: PREDNISONE
     Route: 065
  69. APREMILAST [Suspect]
     Active Substance: APREMILAST
     Indication: Product used for unknown indication
     Dosage: 3 MILLIGRAM, TWICE A DAY
     Route: 065
  70. ARAVA [Suspect]
     Active Substance: LEFLUNOMIDE
     Indication: Rheumatoid arthritis
     Route: 048
  71. ARAVA [Suspect]
     Active Substance: LEFLUNOMIDE
     Dosage: 20 MILLIGRAM, ONCE A DAY
     Route: 048
  72. ARAVA [Suspect]
     Active Substance: LEFLUNOMIDE
     Route: 065
  73. ARAVA [Suspect]
     Active Substance: LEFLUNOMIDE
     Route: 065
  74. ARAVA [Suspect]
     Active Substance: LEFLUNOMIDE
     Route: 048
  75. ARAVA [Suspect]
     Active Substance: LEFLUNOMIDE
     Dosage: 20 MILLIGRAM, ONCE A DAY
     Route: 048
  76. ARAVA [Suspect]
     Active Substance: LEFLUNOMIDE
     Route: 065
  77. CALCIUM CARBONATE [Suspect]
     Active Substance: CALCIUM CARBONATE
     Indication: Product used for unknown indication
     Route: 065
  78. CALCIUM CARBONATE [Suspect]
     Active Substance: CALCIUM CARBONATE
     Route: 065
  79. CELECOXIB [Suspect]
     Active Substance: CELECOXIB
     Indication: Product used for unknown indication
     Dosage: 1 DOSAGE FORM, ONCE A DAY
     Route: 065
  80. CELECOXIB [Suspect]
     Active Substance: CELECOXIB
     Dosage: 2 DOSAGE FORM, ONCE A DAY
     Route: 048
  81. CELECOXIB [Suspect]
     Active Substance: CELECOXIB
     Dosage: UNK, ONCE A DAY
     Route: 065
  82. CELECOXIB [Suspect]
     Active Substance: CELECOXIB
     Dosage: 2 DOSAGE FORM, ONCE A DAY
     Route: 048
  83. CERTOLIZUMAB PEGOL [Suspect]
     Active Substance: CERTOLIZUMAB PEGOL
     Indication: Rheumatoid arthritis
     Route: 058
  84. CETIRIZINE HYDROCHLORIDE\PHENYLEPHRINE HYDROCHLORIDE [Suspect]
     Active Substance: CETIRIZINE HYDROCHLORIDE\PHENYLEPHRINE HYDROCHLORIDE
     Indication: Product used for unknown indication
     Route: 065
  85. CETIRIZINE HYDROCHLORIDE\PSEUDOEPHEDRINE HYDROCHLORIDE [Suspect]
     Active Substance: CETIRIZINE HYDROCHLORIDE\PSEUDOEPHEDRINE HYDROCHLORIDE
     Indication: Rheumatoid arthritis
     Route: 065
  86. CETIRIZINE HYDROCHLORIDE\PSEUDOEPHEDRINE HYDROCHLORIDE [Suspect]
     Active Substance: CETIRIZINE HYDROCHLORIDE\PSEUDOEPHEDRINE HYDROCHLORIDE
     Dosage: 10 MILLIGRAM, ONCE A DAY (1 EVERY 24 HOURS)
     Route: 048
  87. CETIRIZINE HYDROCHLORIDE\PSEUDOEPHEDRINE HYDROCHLORIDE [Suspect]
     Active Substance: CETIRIZINE HYDROCHLORIDE\PSEUDOEPHEDRINE HYDROCHLORIDE
     Route: 065
  88. CETIRIZINE HYDROCHLORIDE\PSEUDOEPHEDRINE HYDROCHLORIDE [Suspect]
     Active Substance: CETIRIZINE HYDROCHLORIDE\PSEUDOEPHEDRINE HYDROCHLORIDE
     Route: 065
  89. CETIRIZINE HYDROCHLORIDE\PSEUDOEPHEDRINE HYDROCHLORIDE [Suspect]
     Active Substance: CETIRIZINE HYDROCHLORIDE\PSEUDOEPHEDRINE HYDROCHLORIDE
     Route: 065
  90. CETRIMIDE [Suspect]
     Active Substance: CETRIMIDE
     Indication: Product used for unknown indication
     Route: 065
  91. CHLORAPREP [Suspect]
     Active Substance: CHLORHEXIDINE GLUCONATE\ISOPROPYL ALCOHOL
     Indication: Rheumatoid arthritis
     Route: 048
  92. CHLORAPREP [Suspect]
     Active Substance: CHLORHEXIDINE GLUCONATE\ISOPROPYL ALCOHOL
     Indication: Product used for unknown indication
     Route: 061
  93. CHLORAPREP [Suspect]
     Active Substance: CHLORHEXIDINE GLUCONATE\ISOPROPYL ALCOHOL
     Route: 065
  94. CHLORHEXIDINE [Suspect]
     Active Substance: CHLORHEXIDINE
     Indication: Product used for unknown indication
     Route: 065
  95. CHLORHEXIDINE [Suspect]
     Active Substance: CHLORHEXIDINE
     Route: 061
  96. CHLORHEXIDINE [Suspect]
     Active Substance: CHLORHEXIDINE
     Route: 002
  97. CHLORHEXIDINE GLUCONATE [Suspect]
     Active Substance: CHLORHEXIDINE GLUCONATE
     Indication: Rheumatoid arthritis
     Route: 002
  98. CIMZIA [Suspect]
     Active Substance: CERTOLIZUMAB PEGOL
     Indication: Rheumatoid arthritis
     Route: 065
  99. CIMZIA [Suspect]
     Active Substance: CERTOLIZUMAB PEGOL
     Indication: Psoriasis
     Dosage: 1 DOSAGE FORM, ONCE A DAY (1 EVERY 24 HOURS)
     Route: 058
  100. CIMZIA [Suspect]
     Active Substance: CERTOLIZUMAB PEGOL
     Route: 058
  101. CIMZIA [Suspect]
     Active Substance: CERTOLIZUMAB PEGOL
     Route: 058
  102. CORTISONE [Suspect]
     Active Substance: CORTISONE
     Indication: Rheumatoid arthritis
     Route: 058
  103. CORTISONE [Suspect]
     Active Substance: CORTISONE
     Route: 058
  104. CORTISONE [Suspect]
     Active Substance: CORTISONE
     Route: 065
  105. CORTISONE [Suspect]
     Active Substance: CORTISONE
     Route: 003
  106. CORTISONE [Suspect]
     Active Substance: CORTISONE
     Route: 048
  107. CORTISONE ACETATE [Suspect]
     Active Substance: CORTISONE ACETATE
     Indication: Rheumatoid arthritis
     Route: 061
  108. CORTISONE ACETATE [Suspect]
     Active Substance: CORTISONE ACETATE
     Route: 048
  109. CORTISONE ACETATE [Suspect]
     Active Substance: CORTISONE ACETATE
     Route: 065
  110. CORTISONE ACETATE [Suspect]
     Active Substance: CORTISONE ACETATE
     Route: 058
  111. CORTISONE ACETATE [Suspect]
     Active Substance: CORTISONE ACETATE
     Route: 061
  112. CORTISONE ACETATE [Suspect]
     Active Substance: CORTISONE ACETATE
     Route: 065
  113. CORTISONE ACETATE [Suspect]
     Active Substance: CORTISONE ACETATE
     Route: 065
  114. CORTISONE ACETATE [Suspect]
     Active Substance: CORTISONE ACETATE
     Route: 065
  115. CORTISONE ACETATE [Suspect]
     Active Substance: CORTISONE ACETATE
     Route: 061
  116. CORTISONE ACETATE [Suspect]
     Active Substance: CORTISONE ACETATE
     Route: 065
  117. CORTISONE ACETATE [Suspect]
     Active Substance: CORTISONE ACETATE
     Route: 048
  118. CORTISONE ACETATE [Suspect]
     Active Substance: CORTISONE ACETATE
     Route: 061
  119. CORTISONE ACETATE [Suspect]
     Active Substance: CORTISONE ACETATE
     Route: 061
  120. CORTISONE ACETATE [Suspect]
     Active Substance: CORTISONE ACETATE
     Route: 058
  121. CORTISONE ACETATE [Suspect]
     Active Substance: CORTISONE ACETATE
     Route: 065
  122. CORTISONE ACETATE [Suspect]
     Active Substance: CORTISONE ACETATE
     Route: 048
  123. CORTISONE ACETATE [Suspect]
     Active Substance: CORTISONE ACETATE
     Route: 065
  124. CORTISONE ACETATE [Suspect]
     Active Substance: CORTISONE ACETATE
     Dosage: 25 MILLIGRAM, ONCE A DAY
     Route: 061
  125. CORTISONE ACETATE [Suspect]
     Active Substance: CORTISONE ACETATE
     Route: 061
  126. CORTISONE ACETATE [Suspect]
     Active Substance: CORTISONE ACETATE
     Route: 061
  127. CORTISONE ACETATE [Suspect]
     Active Substance: CORTISONE ACETATE
     Route: 061
  128. CORTISONE ACETATE [Suspect]
     Active Substance: CORTISONE ACETATE
     Route: 048
  129. CORTISONE ACETATE [Suspect]
     Active Substance: CORTISONE ACETATE
     Route: 061
  130. CORTISONE ACETATE [Suspect]
     Active Substance: CORTISONE ACETATE
     Route: 061
  131. CORTISONE ACETATE [Suspect]
     Active Substance: CORTISONE ACETATE
     Route: 065
  132. CORTISONE ACETATE [Suspect]
     Active Substance: CORTISONE ACETATE
     Route: 061
  133. CORTISONE ACETATE [Suspect]
     Active Substance: CORTISONE ACETATE
     Route: 065
  134. CORTISONE ACETATE [Suspect]
     Active Substance: CORTISONE ACETATE
     Route: 058
  135. CORTISONE ACETATE [Suspect]
     Active Substance: CORTISONE ACETATE
     Route: 003
  136. CORTISONE ACETATE [Suspect]
     Active Substance: CORTISONE ACETATE
     Route: 061
  137. CORTISONE ACETATE [Suspect]
     Active Substance: CORTISONE ACETATE
     Route: 061
  138. CORTISONE ACETATE [Suspect]
     Active Substance: CORTISONE ACETATE
     Route: 061
  139. CORTISONE ACETATE [Suspect]
     Active Substance: CORTISONE ACETATE
     Route: 065
  140. CORTISONE ACETATE [Suspect]
     Active Substance: CORTISONE ACETATE
     Route: 061
  141. COSENTYX [Suspect]
     Active Substance: SECUKINUMAB
     Indication: Psoriatic arthropathy
     Route: 065
  142. DESOXIMETASONE [Suspect]
     Active Substance: DESOXIMETASONE
     Indication: Rheumatoid arthritis
     Route: 048
  143. DESOXIMETASONE [Suspect]
     Active Substance: DESOXIMETASONE
     Route: 058
  144. DESOXIMETASONE [Suspect]
     Active Substance: DESOXIMETASONE
     Route: 058
  145. DESOXIMETASONE [Suspect]
     Active Substance: DESOXIMETASONE
     Route: 061
  146. DESOXIMETASONE [Suspect]
     Active Substance: DESOXIMETASONE
     Route: 003
  147. DESOXIMETASONE [Suspect]
     Active Substance: DESOXIMETASONE
     Route: 048
  148. DESOXIMETASONE [Suspect]
     Active Substance: DESOXIMETASONE
     Route: 065
  149. DESOXIMETASONE [Suspect]
     Active Substance: DESOXIMETASONE
     Route: 048
  150. DESOXIMETASONE [Suspect]
     Active Substance: DESOXIMETASONE
     Route: 058
  151. DESOXIMETASONE [Suspect]
     Active Substance: DESOXIMETASONE
     Route: 048
  152. DESOXIMETASONE [Suspect]
     Active Substance: DESOXIMETASONE
     Route: 048
  153. DESOXIMETASONE [Suspect]
     Active Substance: DESOXIMETASONE
     Route: 065
  154. DESOXIMETASONE [Suspect]
     Active Substance: DESOXIMETASONE
     Route: 065
  155. DESOXIMETASONE [Suspect]
     Active Substance: DESOXIMETASONE
     Indication: Rheumatoid arthritis
     Route: 058
  156. DESOXIMETASONE [Suspect]
     Active Substance: DESOXIMETASONE
     Route: 065
  157. DESOXIMETASONE [Suspect]
     Active Substance: DESOXIMETASONE
     Route: 048
  158. DEXAMETHASONE SODIUM PHOSPHATE [Suspect]
     Active Substance: DEXAMETHASONE SODIUM PHOSPHATE
     Indication: Rheumatoid arthritis
     Route: 065
  159. DEXAMETHASONE SODIUM PHOSPHATE [Suspect]
     Active Substance: DEXAMETHASONE SODIUM PHOSPHATE
     Route: 048
  160. DEXAMETHASONE SODIUM PHOSPHATE [Suspect]
     Active Substance: DEXAMETHASONE SODIUM PHOSPHATE
     Route: 048
  161. DEXAMETHASONE SODIUM PHOSPHATE [Suspect]
     Active Substance: DEXAMETHASONE SODIUM PHOSPHATE
     Route: 048
  162. DEXAMETHASONE SODIUM PHOSPHATE [Suspect]
     Active Substance: DEXAMETHASONE SODIUM PHOSPHATE
     Route: 065
  163. DEXAMETHASONE SODIUM PHOSPHATE [Suspect]
     Active Substance: DEXAMETHASONE SODIUM PHOSPHATE
     Indication: Rheumatoid arthritis
     Route: 048
  164. DICLOFENAC [Suspect]
     Active Substance: DICLOFENAC
     Indication: Product used for unknown indication
     Route: 065
  165. DICLOFENAC DIETHYLAMINE [Suspect]
     Active Substance: DICLOFENAC DIETHYLAMINE
     Indication: Product used for unknown indication
     Route: 065
  166. DICLOFENAC POTASSIUM [Suspect]
     Active Substance: DICLOFENAC POTASSIUM
     Indication: Product used for unknown indication
     Route: 047
  167. DICLOFENAC POTASSIUM [Suspect]
     Active Substance: DICLOFENAC POTASSIUM
     Dosage: 50 MILLIGRAM, ONCE A DAY
     Route: 065
  168. DICLOFENAC POTASSIUM [Suspect]
     Active Substance: DICLOFENAC POTASSIUM
     Route: 065
  169. DICLOFENAC POTASSIUM [Suspect]
     Active Substance: DICLOFENAC POTASSIUM
     Route: 065
  170. DICLOFENAC POTASSIUM [Suspect]
     Active Substance: DICLOFENAC POTASSIUM
     Route: 065
  171. DICLOFENAC POTASSIUM [Suspect]
     Active Substance: DICLOFENAC POTASSIUM
     Route: 065
  172. DICLOFENAC POTASSIUM [Suspect]
     Active Substance: DICLOFENAC POTASSIUM
     Route: 065
  173. DICLOFENAC POTASSIUM [Suspect]
     Active Substance: DICLOFENAC POTASSIUM
     Route: 065
  174. DICLOFENAC POTASSIUM [Suspect]
     Active Substance: DICLOFENAC POTASSIUM
     Route: 065
  175. DICLOFENAC POTASSIUM [Suspect]
     Active Substance: DICLOFENAC POTASSIUM
     Route: 065
  176. DICLOFENAC POTASSIUM [Suspect]
     Active Substance: DICLOFENAC POTASSIUM
     Route: 047
  177. DICLOFENAC POTASSIUM [Suspect]
     Active Substance: DICLOFENAC POTASSIUM
     Route: 065
  178. DOXYCYCLINE [Suspect]
     Active Substance: DOXYCYCLINE
     Indication: Product used for unknown indication
     Route: 065
  179. ENBREL [Suspect]
     Active Substance: ETANERCEPT
     Indication: Rheumatoid arthritis
     Route: 058
  180. ENBREL [Suspect]
     Active Substance: ETANERCEPT
     Indication: Psoriatic arthropathy
     Route: 058
  181. ENBREL [Suspect]
     Active Substance: ETANERCEPT
     Dosage: 20 MILLIGRAM, ONCE IN A WEEK
     Route: 058
  182. ENBREL [Suspect]
     Active Substance: ETANERCEPT
     Dosage: 50 MILLIGRAM, ONCE IN A WEEK
     Route: 058
  183. ENBREL [Suspect]
     Active Substance: ETANERCEPT
     Dosage: 50 MILLIGRAM, ONCE IN A WEEK
     Route: 058
  184. ERELZI [Suspect]
     Active Substance: ETANERCEPT-SZZS
     Indication: Rheumatoid arthritis
     Route: 058
  185. ERELZI [Suspect]
     Active Substance: ETANERCEPT-SZZS
     Route: 065
  186. ERELZI [Suspect]
     Active Substance: ETANERCEPT-SZZS
     Route: 065
  187. ERELZI [Suspect]
     Active Substance: ETANERCEPT-SZZS
     Route: 065
  188. ERELZI [Suspect]
     Active Substance: ETANERCEPT-SZZS
     Route: 065
  189. ERELZI [Suspect]
     Active Substance: ETANERCEPT-SZZS
     Route: 065
  190. ERELZI [Suspect]
     Active Substance: ETANERCEPT-SZZS
     Route: 065
  191. ERELZI [Suspect]
     Active Substance: ETANERCEPT-SZZS
     Route: 058
  192. ERELZI [Suspect]
     Active Substance: ETANERCEPT-SZZS
     Route: 065
  193. ERELZI [Suspect]
     Active Substance: ETANERCEPT-SZZS
     Route: 059
  194. ERELZI [Suspect]
     Active Substance: ETANERCEPT-SZZS
     Route: 065
  195. ERELZI [Suspect]
     Active Substance: ETANERCEPT-SZZS
     Route: 058
  196. ERELZI [Suspect]
     Active Substance: ETANERCEPT-SZZS
     Route: 065
  197. ERELZI [Suspect]
     Active Substance: ETANERCEPT-SZZS
     Indication: Rheumatoid arthritis
     Dosage: 50 MILLIGRAM, ONCE IN A WEEK
     Route: 058
  198. FLUMETHASONE PIVALATE [Suspect]
     Active Substance: FLUMETHASONE PIVALATE
     Indication: Rheumatoid arthritis
     Route: 058
  199. FLUMETHASONE PIVALATE [Suspect]
     Active Substance: FLUMETHASONE PIVALATE
     Route: 058
  200. FLUMETHASONE PIVALATE [Suspect]
     Active Substance: FLUMETHASONE PIVALATE
     Route: 065
  201. FOLIC ACID [Suspect]
     Active Substance: FOLIC ACID
     Indication: Rheumatoid arthritis
     Route: 058
  202. FOLIC ACID [Suspect]
     Active Substance: FOLIC ACID
     Route: 065
  203. FOLIC ACID [Suspect]
     Active Substance: FOLIC ACID
     Route: 048
  204. FOLIC ACID [Suspect]
     Active Substance: FOLIC ACID
     Route: 065
  205. FOLIC ACID [Suspect]
     Active Substance: FOLIC ACID
     Route: 048
  206. FOLIC ACID [Suspect]
     Active Substance: FOLIC ACID
     Route: 065
  207. FOLIC ACID [Suspect]
     Active Substance: FOLIC ACID
     Route: 048
  208. FOLIC ACID [Suspect]
     Active Substance: FOLIC ACID
     Route: 058
  209. FOLIC ACID [Suspect]
     Active Substance: FOLIC ACID
     Route: 065
  210. FOLIC ACID [Suspect]
     Active Substance: FOLIC ACID
     Route: 065
  211. FOLIC ACID [Suspect]
     Active Substance: FOLIC ACID
     Route: 065
  212. FOLIC ACID [Suspect]
     Active Substance: FOLIC ACID
     Route: 065
  213. FOLIC ACID [Suspect]
     Active Substance: FOLIC ACID
     Route: 065
  214. FOLIC ACID [Suspect]
     Active Substance: FOLIC ACID
     Route: 065
  215. FOLIC ACID [Suspect]
     Active Substance: FOLIC ACID
     Route: 065
  216. FOLIC ACID [Suspect]
     Active Substance: FOLIC ACID
     Route: 065
  217. FOLIC ACID [Suspect]
     Active Substance: FOLIC ACID
     Dosage: 5 MILLIGRAM, ONCE A DAY
     Route: 065
  218. FOLIC ACID [Suspect]
     Active Substance: FOLIC ACID
     Route: 065
  219. FOLIC ACID [Suspect]
     Active Substance: FOLIC ACID
     Route: 065
  220. FOLIC ACID [Suspect]
     Active Substance: FOLIC ACID
     Route: 065
  221. FOLIC ACID [Suspect]
     Active Substance: FOLIC ACID
     Route: 065
  222. FOLIC ACID [Suspect]
     Active Substance: FOLIC ACID
     Route: 065
  223. FOLIC ACID [Suspect]
     Active Substance: FOLIC ACID
     Route: 065
  224. FOLIC ACID [Suspect]
     Active Substance: FOLIC ACID
     Route: 065
  225. FOLIC ACID [Suspect]
     Active Substance: FOLIC ACID
     Route: 065
  226. FOSAMAX [Suspect]
     Active Substance: ALENDRONATE SODIUM
     Indication: Rheumatoid arthritis
     Route: 048
  227. GOLIMUMAB [Suspect]
     Active Substance: GOLIMUMAB
     Indication: Rheumatoid arthritis
     Route: 065
  228. GOLIMUMAB [Suspect]
     Active Substance: GOLIMUMAB
     Route: 065
  229. GOLIMUMAB [Suspect]
     Active Substance: GOLIMUMAB
     Route: 058
  230. HUMIRA [Suspect]
     Active Substance: ADALIMUMAB
     Indication: Rheumatoid arthritis
     Route: 057
  231. HUMIRA [Suspect]
     Active Substance: ADALIMUMAB
     Indication: Psoriatic arthropathy
     Route: 058
  232. HUMIRA [Suspect]
     Active Substance: ADALIMUMAB
     Route: 057
  233. HUMIRA [Suspect]
     Active Substance: ADALIMUMAB
     Route: 058
  234. HUMIRA [Suspect]
     Active Substance: ADALIMUMAB
     Route: 058
  235. HUMIRA [Suspect]
     Active Substance: ADALIMUMAB
     Indication: Rheumatoid arthritis
     Route: 058
  236. HUMIRA [Suspect]
     Active Substance: ADALIMUMAB
     Indication: Psoriatic arthropathy
  237. HYDROCORTISONE PROBUTATE [Suspect]
     Active Substance: HYDROCORTISONE PROBUTATE
     Indication: Rheumatoid arthritis
     Route: 065
  238. HYDROCORTISONE SODIUM SUCCINATE [Suspect]
     Active Substance: HYDROCORTISONE SODIUM SUCCINATE
     Indication: Rheumatoid arthritis
     Route: 030
  239. HYDROXYCHLOROQUINE [Suspect]
     Active Substance: HYDROXYCHLOROQUINE
     Indication: Rheumatoid arthritis
     Route: 065
  240. HYDROXYCHLOROQUINE SULFATE [Suspect]
     Active Substance: HYDROXYCHLOROQUINE SULFATE
     Indication: Rheumatoid arthritis
     Route: 048
  241. HYDROXYCHLOROQUINE SULFATE [Suspect]
     Active Substance: HYDROXYCHLOROQUINE SULFATE
     Dosage: 400 MILLIGRAM, ONCE A DAY
     Route: 065
  242. HYDROXYCHLOROQUINE SULFATE [Suspect]
     Active Substance: HYDROXYCHLOROQUINE SULFATE
     Route: 065
  243. HYDROXYCHLOROQUINE SULFATE [Suspect]
     Active Substance: HYDROXYCHLOROQUINE SULFATE
     Indication: Product used for unknown indication
     Dosage: 400 MILLIGRAM, ONCE A DAY
     Route: 065
  244. HYRIMOZ [Suspect]
     Active Substance: ADALIMUMAB-ADAZ
     Indication: Product used for unknown indication
     Route: 058
  245. HYRIMOZ [Suspect]
     Active Substance: ADALIMUMAB-ADAZ
     Route: 057
  246. HYRIMOZ [Suspect]
     Active Substance: ADALIMUMAB-ADAZ
     Route: 058
  247. HYRIMOZ [Suspect]
     Active Substance: ADALIMUMAB-ADAZ
     Route: 058
  248. HYRIMOZ [Suspect]
     Active Substance: ADALIMUMAB-ADAZ
     Route: 057
  249. HYRIMOZ [Suspect]
     Active Substance: ADALIMUMAB-ADAZ
     Route: 057
  250. HYRIMOZ [Suspect]
     Active Substance: ADALIMUMAB-ADAZ
     Route: 058
  251. HYRIMOZ [Suspect]
     Active Substance: ADALIMUMAB-ADAZ
     Route: 058
  252. HYRIMOZ [Suspect]
     Active Substance: ADALIMUMAB-ADAZ
     Route: 048
  253. HYRIMOZ [Suspect]
     Active Substance: ADALIMUMAB-ADAZ
     Route: 058
  254. HYRIMOZ [Suspect]
     Active Substance: ADALIMUMAB-ADAZ
     Route: 058
  255. HYRIMOZ [Suspect]
     Active Substance: ADALIMUMAB-ADAZ
     Dosage: 40 MILLIGRAM
     Route: 058
  256. HYRIMOZ [Suspect]
     Active Substance: ADALIMUMAB-ADAZ
     Route: 058
  257. HYRIMOZ [Suspect]
     Active Substance: ADALIMUMAB-ADAZ
     Route: 058
  258. HYRIMOZ [Suspect]
     Active Substance: ADALIMUMAB-ADAZ
     Indication: Product used for unknown indication
     Route: 058
  259. INFLIXIMAB [Suspect]
     Active Substance: INFLIXIMAB
     Indication: Rheumatoid arthritis
     Route: 042
  260. INFLIXIMAB [Suspect]
     Active Substance: INFLIXIMAB
     Indication: Rheumatoid arthritis
     Route: 065
  261. INFLIXIMAB [Suspect]
     Active Substance: INFLIXIMAB
     Route: 065
  262. INFLIXIMAB [Suspect]
     Active Substance: INFLIXIMAB
     Route: 042
  263. ISOPROPYL ALCOHOL [Suspect]
     Active Substance: ISOPROPYL ALCOHOL
     Indication: Product used for unknown indication
     Route: 002
  264. KEVZARA [Suspect]
     Active Substance: SARILUMAB
     Indication: Rheumatoid arthritis
     Route: 065
  265. KEVZARA [Suspect]
     Active Substance: SARILUMAB
     Route: 065
  266. METHOTREXATE [Suspect]
     Active Substance: METHOTREXATE
     Indication: Rheumatoid arthritis
     Dosage: 25 MILLIGRAM, ONCE A DAY
     Route: 048
  267. METHOTREXATE [Suspect]
     Active Substance: METHOTREXATE
     Dosage: 20 MILLIGRAM, ONCE A DAY
     Route: 065
  268. METHOTREXATE [Suspect]
     Active Substance: METHOTREXATE
     Route: 048
  269. METHOTREXATE [Suspect]
     Active Substance: METHOTREXATE
     Dosage: 25 MILLIGRAM, ONCE A DAY
     Route: 048
  270. METHOTREXATE [Suspect]
     Active Substance: METHOTREXATE
     Dosage: 25 MILLIGRAM, ONCE A DAY
     Route: 013
  271. METHOTREXATE [Suspect]
     Active Substance: METHOTREXATE
     Dosage: 25 MILLIGRAM, ONCE IN A WEEK
     Route: 065
  272. METHOTREXATE [Suspect]
     Active Substance: METHOTREXATE
     Dosage: 25 MILLIGRAM, ONCE IN A WEEK
     Route: 048
  273. METHOTREXATE [Suspect]
     Active Substance: METHOTREXATE
     Dosage: 15 MILLIGRAM, ONCE A DAY
     Route: 065
  274. METHOTREXATE [Suspect]
     Active Substance: METHOTREXATE
     Route: 058
  275. METHOTREXATE [Suspect]
     Active Substance: METHOTREXATE
     Route: 058
  276. METHOTREXATE [Suspect]
     Active Substance: METHOTREXATE
     Route: 065
  277. METHOTREXATE [Suspect]
     Active Substance: METHOTREXATE
     Route: 065
  278. METHOTREXATE [Suspect]
     Active Substance: METHOTREXATE
     Route: 048
  279. METHOTREXATE [Suspect]
     Active Substance: METHOTREXATE
     Route: 065
  280. METHOTREXATE [Suspect]
     Active Substance: METHOTREXATE
     Dosage: 25 MILLIGRAM, ONCE A DAY
     Route: 013
  281. METHOTREXATE [Suspect]
     Active Substance: METHOTREXATE
     Route: 048
  282. METHOTREXATE [Suspect]
     Active Substance: METHOTREXATE
     Dosage: 25 MILLIGRAM, ONCE A DAY
     Route: 058
  283. METHOTREXATE [Suspect]
     Active Substance: METHOTREXATE
     Route: 048
  284. METHOTREXATE [Suspect]
     Active Substance: METHOTREXATE
     Dosage: 20 MILLIGRAM, ONCE A DAY
     Route: 048
  285. METHOTREXATE [Suspect]
     Active Substance: METHOTREXATE
     Route: 048
  286. METHOTREXATE [Suspect]
     Active Substance: METHOTREXATE
     Route: 048
  287. METHOTREXATE [Suspect]
     Active Substance: METHOTREXATE
     Route: 065
  288. METHOTREXATE [Suspect]
     Active Substance: METHOTREXATE
     Route: 048
  289. METHOTREXATE [Suspect]
     Active Substance: METHOTREXATE
     Dosage: 15 MILLIGRAM, ONCE A DAY
     Route: 065
  290. METHOTREXATE [Suspect]
     Active Substance: METHOTREXATE
     Dosage: 20 MILLIGRAM, ONCE A DAY
     Route: 048
  291. METHOTREXATE [Suspect]
     Active Substance: METHOTREXATE
     Route: 013
  292. METHOTREXATE [Suspect]
     Active Substance: METHOTREXATE
     Dosage: 25 MILLIGRAM, ONCE IN A WEEK
     Route: 013
  293. METHOTREXATE [Suspect]
     Active Substance: METHOTREXATE
     Indication: Rheumatoid arthritis
     Dosage: UNK, ONCE A DAY
     Route: 065
  294. METHOTREXATE [Suspect]
     Active Substance: METHOTREXATE
     Dosage: 25 MILLIGRAM, ONCE IN A WEEK
     Route: 013
  295. METHOTREXATE [Suspect]
     Active Substance: METHOTREXATE
     Dosage: 25 MILLIGRAM, ONCE IN A WEEK
     Route: 058
  296. METHOTREXATE [Suspect]
     Active Substance: METHOTREXATE
     Dosage: 15 MILLIGRAM, ONCE A DAY
     Route: 048
  297. METHOTREXATE [Suspect]
     Active Substance: METHOTREXATE
     Dosage: 20 MILLIGRAM, ONCE A DAY
     Route: 048
  298. METHOTREXATE [Suspect]
     Active Substance: METHOTREXATE
     Dosage: 20 MILLIGRAM, ONCE A DAY
     Route: 065
  299. METHOTREXATE [Suspect]
     Active Substance: METHOTREXATE
     Dosage: 20 MILLIGRAM, ONCE IN A WEEK
     Route: 065
  300. METHOTREXATE [Suspect]
     Active Substance: METHOTREXATE
     Dosage: 25 MILLIGRAM, ONCE A DAY
     Route: 048
  301. METHOTREXATE [Suspect]
     Active Substance: METHOTREXATE
     Indication: Rheumatoid arthritis
     Dosage: 25 MILLIGRAM, ONCE IN A WEEK
     Route: 058
  302. METHYLPREDNISOLONE SODIUM SUCCINATE [Suspect]
     Active Substance: METHYLPREDNISOLONE SODIUM SUCCINATE
     Indication: Product used for unknown indication
     Route: 065
  303. METHYLPREDNISOLONE SODIUM SUCCINATE [Suspect]
     Active Substance: METHYLPREDNISOLONE SODIUM SUCCINATE
     Route: 065
  304. NAPROXEN SODIUM [Suspect]
     Active Substance: NAPROXEN SODIUM
     Indication: Product used for unknown indication
     Dosage: 500 MILLIGRAM, TWICE A DAY
     Route: 065
  305. NEOMYCIN [Suspect]
     Active Substance: NEOMYCIN
     Indication: Product used for unknown indication
     Route: 065
  306. NICOTINAMIDE [Suspect]
     Active Substance: NIACINAMIDE
     Indication: Product used for unknown indication
     Route: 065
  307. ORENCIA [Suspect]
     Active Substance: ABATACEPT
     Indication: Rheumatoid arthritis
     Route: 041
  308. ORENCIA [Suspect]
     Active Substance: ABATACEPT
     Route: 058
  309. ORENCIA [Suspect]
     Active Substance: ABATACEPT
     Route: 042
  310. ORENCIA [Suspect]
     Active Substance: ABATACEPT
     Indication: Rheumatoid arthritis
     Route: 058
  311. ORENCIA [Suspect]
     Active Substance: ABATACEPT
     Route: 042
  312. ORENCIA [Suspect]
     Active Substance: ABATACEPT
     Route: 058
  313. ORENCIA [Suspect]
     Active Substance: ABATACEPT
     Route: 058
  314. ORENCIA [Suspect]
     Active Substance: ABATACEPT
     Route: 067
  315. ORENCIA [Suspect]
     Active Substance: ABATACEPT
     Dosage: 0.5 MILLIGRAM, ONCE A DAY
     Route: 065
  316. ORENCIA [Suspect]
     Active Substance: ABATACEPT
     Route: 065
  317. ORENCIA [Suspect]
     Active Substance: ABATACEPT
     Route: 058
  318. ORENCIA [Suspect]
     Active Substance: ABATACEPT
     Dosage: 5 MILLIGRAM, ONCE A DAY
     Route: 065
  319. OTEZLA [Suspect]
     Active Substance: APREMILAST
     Indication: Product used for unknown indication
     Dosage: 2 MILLIGRAM, TWICE A DAY
     Route: 048
  320. OTEZLA [Suspect]
     Active Substance: APREMILAST
     Route: 048
  321. OXYCODONE [Suspect]
     Active Substance: OXYCODONE
     Indication: Rheumatoid arthritis
     Route: 065
  322. OXYCODONE TEREPHTHALATE [Suspect]
     Active Substance: OXYCODONE TEREPHTHALATE
     Indication: Product used for unknown indication
     Route: 065
  323. PERIOGARD [Suspect]
     Active Substance: CHLORHEXIDINE GLUCONATE
     Indication: Product used for unknown indication
     Route: 002
  324. PERIOGARD [Suspect]
     Active Substance: CHLORHEXIDINE GLUCONATE
     Indication: Rheumatoid arthritis
     Route: 065
  325. PHTHALYLSULFATHIAZOLE [Suspect]
     Active Substance: PHTHALYLSULFATHIAZOLE
     Indication: Rheumatoid arthritis
     Route: 058
  326. PHTHALYLSULFATHIAZOLE [Suspect]
     Active Substance: PHTHALYLSULFATHIAZOLE
     Route: 065
  327. PHTHALYLSULFATHIAZOLE [Suspect]
     Active Substance: PHTHALYLSULFATHIAZOLE
     Route: 065
  328. PHTHALYLSULFATHIAZOLE [Suspect]
     Active Substance: PHTHALYLSULFATHIAZOLE
     Route: 065
  329. PHTHALYLSULFATHIAZOLE [Suspect]
     Active Substance: PHTHALYLSULFATHIAZOLE
     Route: 065
  330. PHTHALYLSULFATHIAZOLE [Suspect]
     Active Substance: PHTHALYLSULFATHIAZOLE
     Route: 058
  331. PHTHALYLSULFATHIAZOLE [Suspect]
     Active Substance: PHTHALYLSULFATHIAZOLE
     Route: 048
  332. PHTHALYLSULFATHIAZOLE [Suspect]
     Active Substance: PHTHALYLSULFATHIAZOLE
     Route: 042
  333. PHTHALYLSULFATHIAZOLE [Suspect]
     Active Substance: PHTHALYLSULFATHIAZOLE
     Dosage: 1000 MILLIGRAM, TWICE A DAY
     Route: 048
  334. PHTHALYLSULFATHIAZOLE [Suspect]
     Active Substance: PHTHALYLSULFATHIAZOLE
     Route: 048
  335. PHTHALYLSULFATHIAZOLE [Suspect]
     Active Substance: PHTHALYLSULFATHIAZOLE
     Route: 016
  336. PHTHALYLSULFATHIAZOLE [Suspect]
     Active Substance: PHTHALYLSULFATHIAZOLE
     Dosage: UNK, ONCE A DAY
     Route: 048
  337. PHTHALYLSULFATHIAZOLE [Suspect]
     Active Substance: PHTHALYLSULFATHIAZOLE
     Route: 048
  338. PHTHALYLSULFATHIAZOLE [Suspect]
     Active Substance: PHTHALYLSULFATHIAZOLE
     Dosage: 1000 MILLIGRAM, TWICE A DAY
     Route: 065
  339. PHTHALYLSULFATHIAZOLE [Suspect]
     Active Substance: PHTHALYLSULFATHIAZOLE
     Dosage: 400 MILLIGRAM, ONCE A DAY
     Route: 065
  340. PHTHALYLSULFATHIAZOLE [Suspect]
     Active Substance: PHTHALYLSULFATHIAZOLE
     Route: 016
  341. PHTHALYLSULFATHIAZOLE [Suspect]
     Active Substance: PHTHALYLSULFATHIAZOLE
     Dosage: 500 MILLIGRAM, TWICE A DAY
     Route: 048
  342. PHTHALYLSULFATHIAZOLE [Suspect]
     Active Substance: PHTHALYLSULFATHIAZOLE
     Route: 042
  343. PHTHALYLSULFATHIAZOLE [Suspect]
     Active Substance: PHTHALYLSULFATHIAZOLE
     Route: 065
  344. PHTHALYLSULFATHIAZOLE [Suspect]
     Active Substance: PHTHALYLSULFATHIAZOLE
     Route: 048
  345. PLAQUENIL [Suspect]
     Active Substance: HYDROXYCHLOROQUINE SULFATE
     Indication: Rheumatoid arthritis
     Route: 065
  346. PLAQUENIL [Suspect]
     Active Substance: HYDROXYCHLOROQUINE SULFATE
     Dosage: 400 MILLIGRAM, ONCE A DAY
     Route: 048
  347. PLAQUENIL [Suspect]
     Active Substance: HYDROXYCHLOROQUINE SULFATE
     Route: 065
  348. PLAQUENIL [Suspect]
     Active Substance: HYDROXYCHLOROQUINE SULFATE
     Route: 065
  349. PLAQUENIL [Suspect]
     Active Substance: HYDROXYCHLOROQUINE SULFATE
     Dosage: 400 MILLIGRAM, ONCE A DAY
     Route: 048
  350. PLAQUENIL [Suspect]
     Active Substance: HYDROXYCHLOROQUINE SULFATE
     Route: 065
  351. PLAQUENIL [Suspect]
     Active Substance: HYDROXYCHLOROQUINE SULFATE
     Route: 048
  352. PLAQUENIL [Suspect]
     Active Substance: HYDROXYCHLOROQUINE SULFATE
     Route: 065
  353. PLAQUENIL [Suspect]
     Active Substance: HYDROXYCHLOROQUINE SULFATE
     Route: 048
  354. PREDNISONE [Suspect]
     Active Substance: PREDNISONE
     Indication: Rheumatoid arthritis
     Route: 048
  355. PREDNISONE [Suspect]
     Active Substance: PREDNISONE
     Indication: Psoriatic arthropathy
  356. PREDNISONE [Suspect]
     Active Substance: PREDNISONE
     Indication: Condition aggravated
  357. PREDNISONE [Suspect]
     Active Substance: PREDNISONE
     Indication: Rheumatoid arthritis
     Route: 048
  358. PREDNISONE [Suspect]
     Active Substance: PREDNISONE
     Indication: Psoriatic arthropathy
     Route: 065
  359. PREDNISONE [Suspect]
     Active Substance: PREDNISONE
     Indication: Condition aggravated
     Route: 065
  360. PREDNISONE [Suspect]
     Active Substance: PREDNISONE
     Route: 042
  361. PREDNISONE [Suspect]
     Active Substance: PREDNISONE
     Route: 048
  362. PSEUDOEPHEDRINE [Suspect]
     Active Substance: PSEUDOEPHEDRINE
     Indication: Rheumatoid arthritis
     Route: 065
  363. PSEUDOEPHEDRINE [Suspect]
     Active Substance: PSEUDOEPHEDRINE
     Route: 065
  364. RAMIPRIL [Suspect]
     Active Substance: RAMIPRIL
     Indication: Product used for unknown indication
     Route: 065
  365. CETIRIZINE HYDROCHLORIDE\PSEUDOEPHEDRINE HYDROCHLORIDE [Suspect]
     Active Substance: CETIRIZINE HYDROCHLORIDE\PSEUDOEPHEDRINE HYDROCHLORIDE
     Indication: Rheumatoid arthritis
     Route: 065
  366. REMICADE [Suspect]
     Active Substance: INFLIXIMAB
     Indication: Rheumatoid arthritis
     Route: 042
  367. REMICADE [Suspect]
     Active Substance: INFLIXIMAB
     Route: 065
  368. REMICADE [Suspect]
     Active Substance: INFLIXIMAB
     Route: 042
  369. REMICADE [Suspect]
     Active Substance: INFLIXIMAB
     Route: 042
  370. REMICADE [Suspect]
     Active Substance: INFLIXIMAB
     Route: 058
  371. REMICADE [Suspect]
     Active Substance: INFLIXIMAB
     Route: 042
  372. REMICADE [Suspect]
     Active Substance: INFLIXIMAB
     Route: 042
  373. REMICADE [Suspect]
     Active Substance: INFLIXIMAB
     Route: 042
  374. REMICADE [Suspect]
     Active Substance: INFLIXIMAB
     Route: 042
  375. REMICADE [Suspect]
     Active Substance: INFLIXIMAB
     Route: 042
  376. REMICADE [Suspect]
     Active Substance: INFLIXIMAB
     Route: 042
  377. REMICADE [Suspect]
     Active Substance: INFLIXIMAB
     Route: 042
  378. REMICADE [Suspect]
     Active Substance: INFLIXIMAB
     Route: 042
  379. REMICADE [Suspect]
     Active Substance: INFLIXIMAB
     Route: 042
  380. REMICADE [Suspect]
     Active Substance: INFLIXIMAB
     Route: 042
  381. REMICADE [Suspect]
     Active Substance: INFLIXIMAB
     Route: 042
  382. REMICADE [Suspect]
     Active Substance: INFLIXIMAB
     Route: 065
  383. REMICADE [Suspect]
     Active Substance: INFLIXIMAB
     Route: 042
  384. REMICADE [Suspect]
     Active Substance: INFLIXIMAB
     Route: 042
  385. RITUXIMAB [Suspect]
     Active Substance: RITUXIMAB
     Indication: Rheumatoid arthritis
     Route: 058
  386. RITUXIMAB [Suspect]
     Active Substance: RITUXIMAB
     Route: 042
  387. RITUXIMAB [Suspect]
     Active Substance: RITUXIMAB
     Route: 058
  388. RITUXIMAB [Suspect]
     Active Substance: RITUXIMAB
     Route: 041
  389. RITUXIMAB [Suspect]
     Active Substance: RITUXIMAB
     Route: 042
  390. RITUXIMAB [Suspect]
     Active Substance: RITUXIMAB
     Route: 042
  391. RITUXIMAB [Suspect]
     Active Substance: RITUXIMAB
     Route: 042
  392. RITUXIMAB [Suspect]
     Active Substance: RITUXIMAB
     Route: 042
  393. RITUXIMAB [Suspect]
     Active Substance: RITUXIMAB
     Indication: Rheumatoid arthritis
     Route: 042
  394. CELECOXIB [Suspect]
     Active Substance: CELECOXIB
     Indication: Rheumatoid arthritis
     Dosage: 2 DOSAGE FORM, ONCE A DAY
     Route: 048
  395. ALENDRONATE SODIUM [Suspect]
     Active Substance: ALENDRONATE SODIUM
     Indication: Rheumatoid arthritis
     Route: 065
  396. ALENDRONATE SODIUM [Suspect]
     Active Substance: ALENDRONATE SODIUM
     Route: 048
  397. ALENDRONATE SODIUM [Suspect]
     Active Substance: ALENDRONATE SODIUM
     Route: 065
  398. ALENDRONATE SODIUM [Suspect]
     Active Substance: ALENDRONATE SODIUM
     Route: 048
  399. ALENDRONATE SODIUM [Suspect]
     Active Substance: ALENDRONATE SODIUM
     Route: 048
  400. ALENDRONATE SODIUM [Suspect]
     Active Substance: ALENDRONATE SODIUM
     Route: 048
  401. HYDROCORTISONE [Suspect]
     Active Substance: HYDROCORTISONE
     Indication: Rheumatoid arthritis
     Route: 065
  402. LEFLUNOMIDE [Suspect]
     Active Substance: LEFLUNOMIDE
     Indication: Rheumatoid arthritis
     Route: 048
  403. LEFLUNOMIDE [Suspect]
     Active Substance: LEFLUNOMIDE
     Route: 065
  404. LEFLUNOMIDE [Suspect]
     Active Substance: LEFLUNOMIDE
     Dosage: 20 MILLIGRAM, ONCE A DAY
     Route: 048
  405. MYCOPHENOLATE MOFETIL [Suspect]
     Active Substance: MYCOPHENOLATE MOFETIL
     Indication: Rheumatoid arthritis
     Route: 065
  406. PREGABALIN [Suspect]
     Active Substance: PREGABALIN
     Indication: Rheumatoid arthritis
     Route: 065
  407. SIMPONI [Suspect]
     Active Substance: GOLIMUMAB
     Indication: Rheumatoid arthritis
     Route: 058
  408. SIMPONI [Suspect]
     Active Substance: GOLIMUMAB
     Indication: Psoriatic arthropathy
     Route: 042
  409. SIMPONI [Suspect]
     Active Substance: GOLIMUMAB
     Dosage: 50 MILLIGRAM, ONCE IN A MONTH
     Route: 065
  410. SIMPONI [Suspect]
     Active Substance: GOLIMUMAB
     Route: 042
  411. SIMPONI [Suspect]
     Active Substance: GOLIMUMAB
     Route: 058
  412. SIMPONI [Suspect]
     Active Substance: GOLIMUMAB
     Dosage: 50 MILLIGRAM, ONCE IN A MONTH
     Route: 058
  413. SIMPONI [Suspect]
     Active Substance: GOLIMUMAB
     Dosage: 50 MILLIGRAM, ONCE IN A MONTH
     Route: 058
  414. STELARA [Suspect]
     Active Substance: USTEKINUMAB
     Indication: Rheumatoid arthritis
     Route: 042
  415. STELARA [Suspect]
     Active Substance: USTEKINUMAB
     Indication: Psoriatic arthropathy
     Route: 058
  416. STELARA [Suspect]
     Active Substance: USTEKINUMAB
     Route: 058
  417. STELARA [Suspect]
     Active Substance: USTEKINUMAB
     Route: 065
  418. STELARA [Suspect]
     Active Substance: USTEKINUMAB
     Route: 042
  419. STELARA [Suspect]
     Active Substance: USTEKINUMAB
     Indication: Rheumatoid arthritis
     Route: 058
  420. STELARA [Suspect]
     Active Substance: USTEKINUMAB
     Indication: Psoriatic arthropathy
  421. SULFAMETHOXAZOLE [Suspect]
     Active Substance: SULFAMETHOXAZOLE
     Indication: Rheumatoid arthritis
     Route: 065
  422. SULFAMETHOXAZOLE\TRIMETHOPRIM [Suspect]
     Active Substance: SULFAMETHOXAZOLE\TRIMETHOPRIM
     Indication: Product used for unknown indication
     Route: 065
  423. SULFASALAZINE [Suspect]
     Active Substance: SULFASALAZINE
     Indication: Rheumatoid arthritis
     Route: 065
  424. SULFASALAZINE [Suspect]
     Active Substance: SULFASALAZINE
     Route: 065
  425. SULFASALAZINE [Suspect]
     Active Substance: SULFASALAZINE
     Route: 048
  426. SULFASALAZINE [Suspect]
     Active Substance: SULFASALAZINE
     Dosage: 1 GRAM, TWICE A DAY
     Route: 048
  427. SULFASALAZINE [Suspect]
     Active Substance: SULFASALAZINE
     Indication: Rheumatoid arthritis
     Dosage: UNK, TWICE A DAY
     Route: 048
  428. SULFASALAZINE [Suspect]
     Active Substance: SULFASALAZINE
     Dosage: 2 GRAM, ONCE A DAY
     Route: 048
  429. SULFASALAZINE [Suspect]
     Active Substance: SULFASALAZINE
     Dosage: 1 GRAM, TWICE A DAY
     Route: 065
  430. SULFASALAZINE [Suspect]
     Active Substance: SULFASALAZINE
     Dosage: 1 GRAM, ONCE A DAY
     Route: 065
  431. SULFASALAZINE [Suspect]
     Active Substance: SULFASALAZINE
     Dosage: 1000 MILLIGRAM, ONCE A DAY
     Route: 048
  432. SULFASALAZINE [Suspect]
     Active Substance: SULFASALAZINE
     Route: 048
  433. SULFASALAZINE [Suspect]
     Active Substance: SULFASALAZINE
     Dosage: 1000 MILLIGRAM, TWICE A DAY
     Route: 048
  434. TOCILIZUMAB [Suspect]
     Active Substance: TOCILIZUMAB
     Indication: Rheumatoid arthritis
     Route: 042
  435. TOCILIZUMAB [Suspect]
     Active Substance: TOCILIZUMAB
     Route: 005
  436. TOCILIZUMAB [Suspect]
     Active Substance: TOCILIZUMAB
     Route: 058
  437. TOCILIZUMAB [Suspect]
     Active Substance: TOCILIZUMAB
     Indication: Rheumatoid arthritis
     Dosage: 5 MILLIGRAM, ONCE A DAY
     Route: 065
  438. TOCILIZUMAB [Suspect]
     Active Substance: TOCILIZUMAB
     Dosage: 5 MILLIGRAM, ONCE IN A WEEK
     Route: 048
  439. TOFACITINIB CITRATE [Suspect]
     Active Substance: TOFACITINIB CITRATE
     Indication: Rheumatoid arthritis
     Route: 065
  440. TOFACITINIB CITRATE [Suspect]
     Active Substance: TOFACITINIB CITRATE
     Indication: Psoriatic arthropathy
     Dosage: 10 MILLIGRAM, ONCE A DAY
     Route: 065
  441. TOFACITINIB CITRATE [Suspect]
     Active Substance: TOFACITINIB CITRATE
     Dosage: 5 MILLIGRAM, ONCE IN A WEEK
     Route: 065
  442. TOFACITINIB CITRATE [Suspect]
     Active Substance: TOFACITINIB CITRATE
     Dosage: 5 MILLIGRAM, TWICE A DAY
     Route: 048
  443. TOFACITINIB CITRATE [Suspect]
     Active Substance: TOFACITINIB CITRATE
     Route: 065
  444. TOPICORT [Suspect]
     Active Substance: DESOXIMETASONE
     Indication: Rheumatoid arthritis
     Route: 058
  445. TOPICORT [Suspect]
     Active Substance: DESOXIMETASONE
     Route: 048
  446. TRAMADOL HYDROCHLORIDE [Suspect]
     Active Substance: TRAMADOL HYDROCHLORIDE
     Indication: Rheumatoid arthritis
     Route: 065
  447. USTEKINUMAB [Suspect]
     Active Substance: USTEKINUMAB
     Indication: Product used for unknown indication
     Route: 058
  448. USTEKINUMAB [Suspect]
     Active Substance: USTEKINUMAB
     Indication: Product used for unknown indication
     Route: 042
  449. VITAMIN C [Suspect]
     Active Substance: ASCORBIC ACID
     Indication: Rheumatoid arthritis
     Route: 065
  450. VITAMIN D3 [Suspect]
     Active Substance: CHOLECALCIFEROL
     Indication: Rheumatoid arthritis
     Route: 065
  451. PREDNISONE [Suspect]
     Active Substance: PREDNISONE
     Indication: Rheumatoid arthritis
     Route: 048
  452. XELJANZ [Suspect]
     Active Substance: TOFACITINIB CITRATE
     Indication: Rheumatoid arthritis
     Dosage: 5 MILLIGRAM, TWICE A DAY
     Route: 048
  453. XELJANZ [Suspect]
     Active Substance: TOFACITINIB CITRATE
     Indication: Psoriatic arthropathy
     Dosage: 5 MILLIGRAM, ONCE IN A WEEK
     Route: 048
  454. XELJANZ [Suspect]
     Active Substance: TOFACITINIB CITRATE
     Route: 065
  455. XELJANZ [Suspect]
     Active Substance: TOFACITINIB CITRATE
     Dosage: 1 DOSAGE FORM, ONCE A DAY
     Route: 065
  456. XELJANZ [Suspect]
     Active Substance: TOFACITINIB CITRATE
     Route: 065
  457. XELJANZ [Suspect]
     Active Substance: TOFACITINIB CITRATE
     Route: 016
  458. XELJANZ [Suspect]
     Active Substance: TOFACITINIB CITRATE
     Dosage: 5 MILLIGRAM, ONCE IN A WEEK
     Route: 048
  459. XELJANZ [Suspect]
     Active Substance: TOFACITINIB CITRATE
     Dosage: 5 MILLIGRAM, TWICE A DAY
     Route: 048
  460. XELJANZ [Suspect]
     Active Substance: TOFACITINIB CITRATE
     Dosage: 5 MILLIGRAM, ONCE A DAY
     Route: 048
  461. XELJANZ [Suspect]
     Active Substance: TOFACITINIB CITRATE
     Dosage: 10 MILLIGRAM, ONCE A DAY
     Route: 065

REACTIONS (13)
  - Product use in unapproved indication [Fatal]
  - Dry mouth [Fatal]
  - Facet joint syndrome [Fatal]
  - Intentional product use issue [Fatal]
  - Irritable bowel syndrome [Fatal]
  - Off label use [Fatal]
  - C-reactive protein abnormal [Fatal]
  - Confusional state [Fatal]
  - Contraindicated product administered [Fatal]
  - Diarrhoea [Fatal]
  - Dizziness [Fatal]
  - Sinusitis [Fatal]
  - Therapeutic product effect decreased [Fatal]
